FAERS Safety Report 20280294 (Version 1)
Quarter: 2022Q1

REPORT INFORMATION
  Report Type: Spontaneous
  Country: BE (occurrence: BE)
  Receive Date: 20220103
  Receipt Date: 20220103
  Transmission Date: 20220423
  Serious: Yes (Life-Threatening, Hospitalization, Other)
  Sender: FDA-Public Use
  Company Number: BE-NOVARTISPH-NVSC2020BE272782

PATIENT
  Age: 82 Year
  Sex: Male
  Weight: 67 kg

DRUGS (18)
  1. ASPIRIN [Suspect]
     Active Substance: ASPIRIN
     Indication: Peripheral arterial occlusive disease
     Dosage: 80 MG, QD
     Route: 065
     Dates: start: 20100208
  2. ASPIRIN [Suspect]
     Active Substance: ASPIRIN
     Indication: Coronary artery disease
     Dosage: 5 MG, QD (2.5 MG, BID)
     Route: 065
     Dates: start: 20200623
  3. ASPIRIN [Suspect]
     Active Substance: ASPIRIN
     Indication: Cardiovascular event prophylaxis
  4. XARELTO [Suspect]
     Active Substance: RIVAROXABAN
     Indication: Cardiovascular event prophylaxis
     Dosage: 2.5 MG, BID
     Route: 065
     Dates: start: 20200623, end: 20200930
  5. XARELTO [Suspect]
     Active Substance: RIVAROXABAN
     Indication: Peripheral arterial occlusive disease
     Dosage: 2.5 MG, BID
     Route: 065
     Dates: start: 20201011, end: 20201023
  6. XARELTO [Suspect]
     Active Substance: RIVAROXABAN
     Indication: Coronary artery disease
     Dosage: 2.5 MG, BID
     Route: 065
     Dates: start: 20201027, end: 20201030
  7. XARELTO [Suspect]
     Active Substance: RIVAROXABAN
     Dosage: 2.5 MG, BID
     Route: 065
     Dates: start: 20201103, end: 20201221
  8. XARELTO [Suspect]
     Active Substance: RIVAROXABAN
     Dosage: 2.5 MG, BID
     Route: 065
     Dates: start: 20201228
  9. SULFAMETHOXAZOLE [Concomitant]
     Active Substance: SULFAMETHOXAZOLE
     Indication: Product used for unknown indication
     Dosage: 800 MG, BID
     Route: 065
     Dates: start: 20201001
  10. ATEZOLIZUMAB [Concomitant]
     Active Substance: ATEZOLIZUMAB
     Indication: Product used for unknown indication
     Dosage: 1200 MG
     Route: 065
     Dates: start: 20200701, end: 20200701
  11. ATEZOLIZUMAB [Concomitant]
     Active Substance: ATEZOLIZUMAB
     Dosage: 1200 MG
     Route: 065
     Dates: start: 20200722, end: 20200722
  12. ATEZOLIZUMAB [Concomitant]
     Active Substance: ATEZOLIZUMAB
     Dosage: 1200 MG
     Route: 065
     Dates: start: 20200812, end: 20200812
  13. METHYLPREDNISOLONE [Concomitant]
     Active Substance: METHYLPREDNISOLONE
     Indication: Product used for unknown indication
     Dosage: 80 MG, QD
     Route: 065
     Dates: start: 20200924, end: 20200924
  14. METHYLPREDNISOLONE [Concomitant]
     Active Substance: METHYLPREDNISOLONE
     Dosage: 80 MG, QD
     Route: 065
     Dates: start: 20201001, end: 20201001
  15. METHYLPREDNISOLONE [Concomitant]
     Active Substance: METHYLPREDNISOLONE
     Dosage: 320 MG, QD (160 MG, BID)
     Route: 065
     Dates: start: 20201001, end: 20201010
  16. METHYLPREDNISOLONE [Concomitant]
     Active Substance: METHYLPREDNISOLONE
     Dosage: 40 MG, QD
     Route: 065
     Dates: start: 20201026, end: 20201026
  17. METHYLPREDNISOLONE [Concomitant]
     Active Substance: METHYLPREDNISOLONE
     Dosage: 40 MG, QD
     Route: 065
     Dates: start: 20201102, end: 20201102
  18. TRIMETHOPRIM [Concomitant]
     Active Substance: TRIMETHOPRIM
     Indication: Product used for unknown indication
     Dosage: 160 MG, BID
     Route: 065
     Dates: start: 20201001, end: 20201010

REACTIONS (5)
  - Metastases to liver [Recovering/Resolving]
  - Cystitis haemorrhagic [Recovering/Resolving]
  - Haematuria [Recovered/Resolved]
  - Epistaxis [Recovered/Resolved]
  - Haematuria [Unknown]

NARRATIVE: CASE EVENT DATE: 20200912
